FAERS Safety Report 11495937 (Version 1)
Quarter: 2015Q3

REPORT INFORMATION
  Report Type: Spontaneous
  Country: US (occurrence: US)
  Receive Date: 20150911
  Receipt Date: 20150911
  Transmission Date: 20151125
  Serious: Yes (Hospitalization, Other)
  Sender: FDA-Public Use
  Company Number: US-GLAXOSMITHKLINE-US2015129680

PATIENT
  Sex: Female

DRUGS (27)
  1. ADVAIR DISKUS [Suspect]
     Active Substance: FLUTICASONE PROPIONATE\SALMETEROL XINAFOATE
     Indication: CHRONIC OBSTRUCTIVE PULMONARY DISEASE
     Dosage: 1 PUFF(S), BID
     Route: 055
     Dates: start: 2011
  2. SODIUM CHLORIDE NASAL SPRAY [Concomitant]
  3. CLONAZEPAM. [Concomitant]
     Active Substance: CLONAZEPAM
  4. OMEPRAZOLE. [Concomitant]
     Active Substance: OMEPRAZOLE
  5. PRAMIPEXOLE. [Concomitant]
     Active Substance: PRAMIPEXOLE
  6. DULOXETINE. [Concomitant]
     Active Substance: DULOXETINE
  7. VITAMIN B12 [Concomitant]
     Active Substance: CYANOCOBALAMIN
  8. ALBUTEROL. [Concomitant]
     Active Substance: ALBUTEROL
  9. AZITHROMYCIN [Concomitant]
     Active Substance: AZITHROMYCIN ANHYDROUS
  10. TRAMADOL. [Concomitant]
     Active Substance: TRAMADOL
  11. VITAMIN C [Concomitant]
     Active Substance: ASCORBIC ACID
  12. PREDNISONE. [Concomitant]
     Active Substance: PREDNISONE
  13. PRIMIDONE. [Concomitant]
     Active Substance: PRIMIDONE
  14. FUROSEMIDE. [Concomitant]
     Active Substance: FUROSEMIDE
  15. GABAPENTIN. [Concomitant]
     Active Substance: GABAPENTIN
  16. IBANDRONATE [Concomitant]
     Active Substance: IBANDRONATE SODIUM
  17. MS CONTIN [Concomitant]
     Active Substance: MORPHINE SULFATE
  18. ONDANSETRON [Concomitant]
     Active Substance: ONDANSETRON
  19. ASA [Concomitant]
     Active Substance: ASPIRIN
  20. BOTOX [Concomitant]
     Active Substance: ONABOTULINUMTOXINA
  21. IRON [Concomitant]
     Active Substance: IRON
  22. VITAMIN E [Concomitant]
     Active Substance: .ALPHA.-TOCOPHEROL
  23. VITAMIN D [Concomitant]
     Active Substance: CHOLECALCIFEROL
  24. PROAIR HFA [Concomitant]
     Active Substance: ALBUTEROL SULFATE
  25. ROBAXIN [Concomitant]
     Active Substance: METHOCARBAMOL
  26. CALCIUM [Concomitant]
     Active Substance: CALCIUM
  27. POTASSIUM [Concomitant]
     Active Substance: POTASSIUM

REACTIONS (7)
  - Nerve compression [Unknown]
  - Tremor [Unknown]
  - Pneumonia [Recovered/Resolved]
  - Colon cancer [Recovered/Resolved]
  - Paraesthesia [Unknown]
  - Hepatic enzyme increased [Unknown]
  - Arthralgia [Unknown]

NARRATIVE: CASE EVENT DATE: 2012
